FAERS Safety Report 19238084 (Version 3)
Quarter: 2022Q1

REPORT INFORMATION
  Report Type: Spontaneous
  Country: US (occurrence: US)
  Receive Date: 20210510
  Receipt Date: 20220210
  Transmission Date: 20220423
  Serious: Yes (Hospitalization, Other)
  Sender: FDA-Public Use
  Company Number: US-MLMSERVICE-20210422-2849983-1

PATIENT
  Age: 70 Year
  Sex: Male

DRUGS (1)
  1. HEPARIN SODIUM [Suspect]
     Active Substance: HEPARIN SODIUM
     Indication: Anticoagulant therapy
     Dosage: UNK

REACTIONS (3)
  - Pulmonary embolism [Recovered/Resolved]
  - Heparin-induced thrombocytopenia [Recovered/Resolved]
  - Right ventricular dysfunction [Recovered/Resolved]
